FAERS Safety Report 9592845 (Version 1)
Quarter: 2013Q4

REPORT INFORMATION
  Report Type: Spontaneous
  Country: GB (occurrence: None)
  Receive Date: 20131002
  Receipt Date: 20131002
  Transmission Date: 20140711
  Serious: Yes (Death, Other)
  Sender: FDA-Public Use
  Company Number: 2013267963

PATIENT
  Age: 61 Year
  Sex: Female

DRUGS (1)
  1. DALTEPARIN SODIUM (DALTEPARIN SODIUM) UNKNOWN [Suspect]
     Indication: PULMONARY EMBOLISM
     Dosage: SUBCUTANEOUS.

REACTIONS (1)
  - Heparin-induced thrombocytopenia [None]
